FAERS Safety Report 24564731 (Version 6)
Quarter: 2025Q3

REPORT INFORMATION
  Report Type: Report from Study
  Country: US (occurrence: US)
  Receive Date: 20241030
  Receipt Date: 20250929
  Transmission Date: 20251021
  Serious: Yes (Other)
  Sender: ABBVIE
  Company Number: US-ABBVIE-5418350

PATIENT
  Age: 61 Year
  Sex: Male
  Weight: 82 kg

DRUGS (6)
  1. HUMIRA [Suspect]
     Active Substance: ADALIMUMAB
     Indication: Colitis ulcerative
     Route: 058
     Dates: start: 20190823
  2. HUMIRA [Suspect]
     Active Substance: ADALIMUMAB
     Route: 058
     Dates: start: 20190910
  3. HUMIRA [Suspect]
     Active Substance: ADALIMUMAB
     Route: 058
  4. HUMIRA [Suspect]
     Active Substance: ADALIMUMAB
     Route: 058
     Dates: start: 20190920
  5. HUMIRA [Suspect]
     Active Substance: ADALIMUMAB
     Route: 058
  6. HUMIRA [Suspect]
     Active Substance: ADALIMUMAB
     Route: 058
     Dates: start: 20220922

REACTIONS (14)
  - Deafness unilateral [Not Recovered/Not Resolved]
  - Rash [Not Recovered/Not Resolved]
  - Ear infection fungal [Not Recovered/Not Resolved]
  - Ear infection fungal [Recovered/Resolved]
  - Ear infection [Recovered/Resolved]
  - Lower respiratory tract infection [Not Recovered/Not Resolved]
  - Otorrhoea [Unknown]
  - Tympanic membrane perforation [Unknown]
  - Ear infection [Recovered/Resolved]
  - Infection [Not Recovered/Not Resolved]
  - Ear infection [Not Recovered/Not Resolved]
  - Lip and/or oral cavity cancer [Unknown]
  - Tooth disorder [Unknown]
  - Device issue [Unknown]

NARRATIVE: CASE EVENT DATE: 20220101
